FAERS Safety Report 4381983-5 (Version None)
Quarter: 2004Q2

REPORT INFORMATION
  Report Type: 
  Country: None (occurrence: None)
  Receive Date: 20040603
  Receipt Date: 20030825
  Transmission Date: 20050107
  Serious: Yes (Death, Hospitalization)
  Sender: FDA-Public Use
  Company Number: 200315130US

PATIENT
  Age: 74 Year
  Sex: Female
  Weight: 99 kg

DRUGS (5)
  1. LOVENOX [Suspect]
     Indication: CORONARY ARTERY DISEASE
     Dosage: 100 MG BID SC
     Route: 058
     Dates: start: 20030328, end: 20030331
  2. LOVENOX [Suspect]
     Indication: PULMONARY EMBOLISM
     Dosage: 100 MG BID SC
     Route: 058
     Dates: start: 20030328, end: 20030331
  3. WARFARIN SODIUM [Concomitant]
  4. PREDNISONE [Concomitant]
  5. HYDROXYCHLOROQUINE PHOSPHATE (PLAQUENIL) [Concomitant]

REACTIONS (1)
  - RETROPERITONEAL HAEMORRHAGE [None]
